FAERS Safety Report 4866383-3 (Version None)
Quarter: 2005Q4

REPORT INFORMATION
  Report Type: 
  Country: None (occurrence: None)
  Receive Date: 20051227
  Receipt Date: 20050310
  Transmission Date: 20060501
  Serious: Yes (Hospitalization)
  Sender: FDA-Public Use
  Company Number: US-MERCK-0503USA02030

PATIENT
  Age: 70 Year
  Sex: Male
  Weight: 98 kg

DRUGS (14)
  1. VIOXX [Suspect]
     Indication: ARTHRITIS
     Route: 048
     Dates: start: 19991122, end: 20040801
  2. VIOXX [Suspect]
     Route: 048
     Dates: start: 19991122, end: 20040801
  3. VIOXX [Suspect]
     Route: 048
     Dates: start: 19991122, end: 20040801
  4. TETRACYCLINE [Concomitant]
     Route: 065
  5. GLYBURIDE [Concomitant]
     Route: 065
  6. PRANDIN [Concomitant]
     Route: 065
  7. AVANDIA [Concomitant]
     Route: 065
  8. NORVASC [Concomitant]
     Route: 065
  9. CAPTOPRIL [Concomitant]
     Route: 065
  10. ACIPHEX [Concomitant]
     Route: 065
  11. AMARYL [Concomitant]
     Route: 065
  12. GLUCOPHAGE [Concomitant]
     Route: 065
  13. TOPROL-XL [Concomitant]
     Route: 065
  14. LANOXIN [Concomitant]
     Route: 065

REACTIONS (15)
  - BRONCHITIS ACUTE [None]
  - CATARACT [None]
  - CORONARY ARTERY DISEASE [None]
  - EMOTIONAL DISTRESS [None]
  - FLUID RETENTION [None]
  - LIPOMA [None]
  - MYOCARDIAL INFARCTION [None]
  - OEDEMA PERIPHERAL [None]
  - PEPTIC ULCER [None]
  - PLEURAL EFFUSION [None]
  - PLEURISY [None]
  - PRESCRIBED OVERDOSE [None]
  - RENAL CYST [None]
  - SMALL INTESTINAL OBSTRUCTION [None]
  - TRIGGER FINGER [None]
